FAERS Safety Report 5173440-3 (Version None)
Quarter: 2006Q4

REPORT INFORMATION
  Report Type: 
  Country: None (occurrence: None)
  Receive Date: 20061214
  Receipt Date: 20050926
  Transmission Date: 20070319
  Serious: Yes (Death, Other)
  Sender: FDA-Public Use
  Company Number: PHEH2005US10765

PATIENT
  Age: 44 Year
  Sex: Male

DRUGS (1)
  1. TRILEPTAL [Suspect]
     Indication: EPILEPSY
     Dosage: 300 MG, 7 TO 8 TABS PER DAY
     Route: 048
     Dates: start: 20050804

REACTIONS (9)
  - AGITATION [None]
  - CONVULSION [None]
  - DEATH [None]
  - ENERGY INCREASED [None]
  - HYPERHIDROSIS [None]
  - MOOD SWINGS [None]
  - MYOCARDIAL INFARCTION [None]
  - NEPHROLITHIASIS [None]
  - REFUSAL OF TREATMENT BY PATIENT [None]
